FAERS Safety Report 24935149 (Version 2)
Quarter: 2025Q1

REPORT INFORMATION
  Report Type: Report from Study
  Country: IN (occurrence: IN)
  Receive Date: 20250206
  Receipt Date: 20250227
  Transmission Date: 20250409
  Serious: Yes (Other)
  Sender: NOVARTIS
  Company Number: IN-002147023-NVSC2024IN110716

PATIENT
  Sex: Female

DRUGS (2)
  1. RIBOCICLIB [Suspect]
     Active Substance: RIBOCICLIB
     Indication: Hormone receptor positive HER2 negative breast cancer
     Dosage: 600 MG, QD
     Route: 048
     Dates: start: 20240401
  2. RIBOCICLIB [Suspect]
     Active Substance: RIBOCICLIB
     Indication: Breast cancer metastatic

REACTIONS (14)
  - Invasive ductal breast carcinoma [Unknown]
  - Hip fracture [Unknown]
  - Metastases to bone [Unknown]
  - Arthralgia [Unknown]
  - Breast mass [Unknown]
  - Hepatic lesion [Unknown]
  - Peau d^orange [Unknown]
  - Calcium ionised decreased [Unknown]
  - Lipids abnormal [Unknown]
  - Erythema [Unknown]
  - Pruritus [Unknown]
  - Abdominal pain lower [Recovering/Resolving]
  - Gene mutation [Unknown]
  - Therapy non-responder [Unknown]
